FAERS Safety Report 19698381 (Version 1)
Quarter: 2021Q3

REPORT INFORMATION
  Report Type: Spontaneous
  Country: US (occurrence: US)
  Receive Date: 20210813
  Receipt Date: 20210813
  Transmission Date: 20211014
  Serious: No
  Sender: FDA-Public Use
  Company Number: None

PATIENT
  Sex: Female

DRUGS (2)
  1. GILENYA [Suspect]
     Active Substance: FINGOLIMOD HYDROCHLORIDE
  2. OCREVUS [Suspect]
     Active Substance: OCRELIZUMAB

REACTIONS (6)
  - Muscular weakness [None]
  - Spinal cord disorder [None]
  - Dizziness [None]
  - Balance disorder [None]
  - Injury [None]
  - Central nervous system lesion [None]
